FAERS Safety Report 7375494-2 (Version None)
Quarter: 2011Q1

REPORT INFORMATION
  Report Type: 
  Country: None (occurrence: None)
  Receive Date: 20110325
  Receipt Date: 20110321
  Transmission Date: 20110831
  Serious: Yes (Other)
  Sender: FDA-Public Use
  Company Number: US-SANOFI-AVENTIS-2011SA017492

PATIENT
  Age: 77 Year
  Sex: Male

DRUGS (3)
  1. LANTUS [Suspect]
     Dosage: DOSE:42 UNIT(S)
     Route: 058
  2. LANTUS [Suspect]
     Dosage: DOSE:28 UNIT(S)
     Route: 058
  3. LANTUS [Suspect]
     Dosage: DOSE:44 UNIT(S)
     Route: 058

REACTIONS (2)
  - CHEMOTHERAPY [None]
  - SURGERY [None]
